FAERS Safety Report 6616748-4 (Version None)
Quarter: 2010Q1

REPORT INFORMATION
  Report Type: 
  Country: None (occurrence: None)
  Receive Date: 20100305
  Receipt Date: 20100305
  Transmission Date: 20100710
  Serious: Yes (Hospitalization)
  Sender: FDA-Public Use
  Company Number: HK-PFIZER INC-2009300410

PATIENT
  Age: 86 Year
  Sex: Male

DRUGS (2)
  1. CELEBREX [Suspect]
     Indication: BONE PAIN
     Dosage: 200 MG, 1X/DAY
     Route: 048
  2. CELEBREX [Suspect]
     Indication: OSTEONECROSIS

REACTIONS (1)
  - BENIGN PROSTATIC HYPERPLASIA [None]
